FAERS Safety Report 5317466-5 (Version None)
Quarter: 2007Q2

REPORT INFORMATION
  Report Type: 
  Country: None (occurrence: None)
  Receive Date: 20070507
  Receipt Date: 20070503
  Transmission Date: 20071010
  Serious: Yes (Death, Hospitalization)
  Sender: FDA-Public Use
  Company Number: PHNU2006DE04058

PATIENT
  Sex: Male

DRUGS (2)
  1. EXJADE [Suspect]
     Dosage: 500 MG/DAY
     Route: 048
     Dates: start: 20061201, end: 20061201
  2. NILOTINIB [Concomitant]
     Indication: CHRONIC MYELOID LEUKAEMIA
     Dosage: 400 MG/DAY
     Route: 048
     Dates: start: 20050901, end: 20061115

REACTIONS (7)
  - GENERAL PHYSICAL HEALTH DETERIORATION [None]
  - HISTOLOGY ABNORMAL [None]
  - LYMPHOCYTIC INFILTRATION [None]
  - MALIGNANT NEOPLASM PROGRESSION [None]
  - PAIN OF SKIN [None]
  - PRURITUS [None]
  - SKIN DISORDER [None]
